FAERS Safety Report 7880167-3 (Version None)
Quarter: 2011Q4

REPORT INFORMATION
  Report Type: 
  Country: None (occurrence: None)
  Receive Date: 20111101
  Receipt Date: 20111024
  Transmission Date: 20120403
  Serious: No
  Sender: FDA-Public Use
  Company Number: US-PFIZER INC-2011258387

PATIENT
  Sex: Female
  Weight: 83.9 kg

DRUGS (6)
  1. PREMARIN [Suspect]
     Indication: OFF LABEL USE
     Dosage: 0.625 MG, 1X/DAY
     Route: 067
     Dates: start: 20110825
  2. CALCIUM [Concomitant]
     Indication: BONE DISORDER
     Dosage: UNK
  3. FUROSEMIDE [Concomitant]
     Indication: LYMPHOEDEMA
     Dosage: UNK
  4. WARFARIN [Concomitant]
     Indication: THROMBOSIS
     Dosage: UNK
     Dates: start: 20060101
  5. ACTONEL [Concomitant]
     Indication: BONE DISORDER
     Dosage: UNK
  6. PREMARIN [Suspect]
     Indication: SMEAR CERVIX ABNORMAL

REACTIONS (2)
  - ALOPECIA [None]
  - TRICHORRHEXIS [None]
